FAERS Safety Report 26087027 (Version 1)
Quarter: 2025Q4

REPORT INFORMATION
  Report Type: Spontaneous
  Country: EU (occurrence: EU)
  Receive Date: 20251125
  Receipt Date: 20251125
  Transmission Date: 20260118
  Serious: Yes (Life-Threatening, Hospitalization)
  Sender: RANBAXY
  Company Number: EU-AFSSAPS-MP2025001138

PATIENT
  Age: 82 Year
  Sex: Male
  Weight: 66 kg

DRUGS (3)
  1. PAROXETINE [Suspect]
     Active Substance: PAROXETINE
     Indication: Product used for unknown indication
     Dosage: UNK
     Route: 065
  2. LANSOPRAZOLE [Suspect]
     Active Substance: LANSOPRAZOLE
     Indication: Product used for unknown indication
     Dosage: UNK
     Route: 065
  3. ASPIRIN\CLOPIDOGREL [Suspect]
     Active Substance: ASPIRIN\CLOPIDOGREL
     Indication: Acute myocardial infarction
     Dosage: 1 DOSAGE FORM, DAILY
     Route: 048
     Dates: start: 20250612, end: 20250801

REACTIONS (1)
  - Febrile neutropenia [Not Recovered/Not Resolved]

NARRATIVE: CASE EVENT DATE: 20250729
